FAERS Safety Report 5842963-3 (Version None)
Quarter: 2008Q3

REPORT INFORMATION
  Report Type: 
  Country: None (occurrence: None)
  Receive Date: 20080811
  Receipt Date: 20080731
  Transmission Date: 20090109
  Serious: Yes (Other)
  Sender: FDA-Public Use
  Company Number: GXKR2008GB07144

PATIENT
  Age: 78 Year
  Sex: Female

DRUGS (16)
  1. CEFUROXIME [Suspect]
     Indication: CATARACT OPERATION
     Dosage: 125 MG
     Dates: start: 20080225, end: 20080225
  2. EPINEPHRINE [Suspect]
     Indication: CATARACT OPERATION
     Dosage: INTRACAMERAL
     Dates: start: 20080225, end: 20080225
  3. MIOCHOL [Suspect]
     Indication: CATARACT OPERATION
     Dates: start: 20080225, end: 20080225
  4. SODIUM HYALURONATE (HYALURONATE SODIUM) [Suspect]
     Indication: CATARACT OPERATION
     Dosage: 23 MG
     Dates: start: 20080225, end: 20080225
  5. AMLODIPINE [Concomitant]
  6. ACETYLSALICYLIC ACID SRT [Concomitant]
  7. BENDROFLUMETHIAZIDE (BENDROFLUMETHAIZIDE) [Concomitant]
  8. HYALASE (HYALURONIDASE) [Concomitant]
  9. LIDOCAINE [Concomitant]
  10. LOSARTAN POTASSIUM [Concomitant]
  11. MAXITROL (DEXAMETHASONE,NEOMYCIN SULFATE, POLYMYXIN B SULFATE) [Concomitant]
  12. MINIMS CYCLOPENTOLAT HYDROCHLORIDE [Concomitant]
  13. MINIMS PHENYLEPHRINE (PHENYLEPHRINE HYDROCHLORIDE) [Concomitant]
  14. POVIDONE IODINE [Concomitant]
  15. VOLTAROL (DICOFENAC SODIUM) [Concomitant]
  16. WATER FOR INJECTION (WATER FOR INJECTION) [Concomitant]

REACTIONS (2)
  - RETINAL INJURY [None]
  - VISUAL ACUITY REDUCED [None]
